FAERS Safety Report 4648861-5 (Version None)
Quarter: 2005Q2

REPORT INFORMATION
  Report Type: 
  Country: None (occurrence: None)
  Receive Date: 20050427
  Receipt Date: 20050413
  Transmission Date: 20051028
  Serious: Yes (Hospitalization, Other)
  Sender: FDA-Public Use
  Company Number: USA050392842

PATIENT
  Age: 79 Year
  Sex: Female
  Weight: 45 kg

DRUGS (5)
  1. FORTEO [Suspect]
     Indication: OSTEOPOROSIS
     Dosage: 20 UG/1 DAY
     Dates: start: 20050105
  2. CELEBREX [Concomitant]
  3. PLAVIX [Concomitant]
  4. LANOXIN (DIGOXIN-SANDOZ) [Concomitant]
  5. VASOTEC [Concomitant]

REACTIONS (2)
  - BLOOD PRESSURE INCREASED [None]
  - CEREBROVASCULAR ACCIDENT [None]
